FAERS Safety Report 5572442-2 (Version None)
Quarter: 2007Q4

REPORT INFORMATION
  Report Type: 
  Country: None (occurrence: None)
  Receive Date: 20071219
  Receipt Date: 20071204
  Transmission Date: 20080405
  Serious: Yes (Disabling)
  Sender: FDA-Public Use
  Company Number: S07-FRA-06084-01

PATIENT
  Age: 69 Year
  Sex: Male
  Weight: 68 kg

DRUGS (4)
  1. SEROPRAM (CITALOPRAM HYDROBROMIDE) [Suspect]
     Indication: DEPRESSION
     Dates: start: 20071017, end: 20071112
  2. RISPERDAL [Suspect]
  3. OXAZEPAM [Concomitant]
  4. GLUCOPHAGE [Concomitant]

REACTIONS (1)
  - JAUNDICE CHOLESTATIC [None]
